FAERS Safety Report 5104652-2 (Version None)
Quarter: 2006Q3

REPORT INFORMATION
  Report Type: 
  Country: None (occurrence: None)
  Receive Date: 20060914
  Receipt Date: 20050502
  Transmission Date: 20061208
  Serious: Yes (Hospitalization)
  Sender: FDA-Public Use
  Company Number: FR-AMGEN-UK130500

PATIENT
  Sex: Male

DRUGS (7)
  1. KINERET [Suspect]
     Indication: DRUG USE FOR UNKNOWN INDICATION
     Route: 058
     Dates: start: 20020411, end: 20050115
  2. BI-PROFENID [Suspect]
     Route: 048
     Dates: start: 20010223
  3. CORTANCYL [Suspect]
     Route: 048
     Dates: start: 20010503
  4. PLAQUENIL [Suspect]
     Route: 048
  5. DIDRONEL [Concomitant]
     Route: 065
  6. CALCIUM GLUCONATE [Concomitant]
     Route: 065
  7. VITAMINS [Concomitant]
     Route: 065

REACTIONS (2)
  - BASAL CELL CARCINOMA [None]
  - MALIGNANT MELANOMA [None]
